FAERS Safety Report 11362802 (Version 1)
Quarter: 2015Q3

REPORT INFORMATION
  Report Type: Spontaneous
  Country: US (occurrence: US)
  Receive Date: 20150810
  Receipt Date: 20150810
  Transmission Date: 20151125
  Serious: Yes (Disabling, Other)
  Sender: FDA-Public Use
  Company Number: US-PFIZER INC-2015261454

PATIENT
  Age: 52 Year
  Sex: Female
  Weight: 142 kg

DRUGS (12)
  1. FUROSEMIDE. [Concomitant]
     Active Substance: FUROSEMIDE
     Dosage: 40 MG, UNK
  2. LATUDA [Concomitant]
     Active Substance: LURASIDONE HYDROCHLORIDE
     Dosage: 50 MG, UNK
  3. BUPROPION HYDROCHLORIDE SR [Concomitant]
     Active Substance: BUPROPION HYDROCHLORIDE
     Dosage: 150 MG, UNK
  4. PROAIR INHALER [Concomitant]
     Dosage: UNK
  5. ULTRAM [Concomitant]
     Active Substance: TRAMADOL HYDROCHLORIDE
     Dosage: 50 MG, UNK
  6. LYRICA [Suspect]
     Active Substance: PREGABALIN
     Indication: FIBROMYALGIA
     Dosage: 225 MG, 1X/DAY
     Route: 048
  7. LYRICA [Suspect]
     Active Substance: PREGABALIN
     Dosage: 150 MG, DAILY
     Route: 048
  8. LASIX [Concomitant]
     Active Substance: FUROSEMIDE
     Dosage: 40 MG, UNK
  9. CONCERTA [Concomitant]
     Active Substance: METHYLPHENIDATE HYDROCHLORIDE
     Dosage: 54 MG, UNK
  10. LYRICA [Suspect]
     Active Substance: PREGABALIN
     Dosage: 225 MG, DAILY
     Route: 048
  11. LORAZEPAM. [Concomitant]
     Active Substance: LORAZEPAM
     Dosage: 0.5 MG, UNK
  12. CYMBALTA [Concomitant]
     Active Substance: DULOXETINE HYDROCHLORIDE
     Dosage: 50 MG, UNK

REACTIONS (4)
  - Mental impairment [Unknown]
  - Peripheral swelling [Not Recovered/Not Resolved]
  - Protein deficiency [Unknown]
  - General physical health deterioration [Unknown]

NARRATIVE: CASE EVENT DATE: 2012
